FAERS Safety Report 5856957-5 (Version None)
Quarter: 2008Q3

REPORT INFORMATION
  Report Type: 
  Country: None (occurrence: None)
  Receive Date: 20080818
  Receipt Date: 20080617
  Transmission Date: 20090109
  Serious: No
  Sender: FDA-Public Use
  Company Number: WAES 0806USA03372

PATIENT
  Age: 76 Year
  Sex: Female

DRUGS (19)
  1. JANUVIA [Suspect]
     Dosage: 100 MG/DAILY/PO
     Route: 048
     Dates: start: 20080121
  2. ACTONEL [Concomitant]
  3. ALLEGRA [Concomitant]
  4. AMARYL [Concomitant]
  5. AMBIEN [Concomitant]
  6. DITROPAN XL [Concomitant]
  7. DONNATAL [Concomitant]
  8. LASIX [Concomitant]
  9. LIPITOR [Concomitant]
  10. LODINE [Concomitant]
  11. LYRICA [Concomitant]
  12. MIACALCIN [Concomitant]
  13. MIRALAX [Concomitant]
  14. NORVASC [Concomitant]
  15. PERIACTIN [Concomitant]
  16. PHENERGAN (PROMETHAZINE HYDROCHL [Concomitant]
  17. PROTONIX [Concomitant]
  18. SINGULAIR [Concomitant]
  19. SYNTHROID [Concomitant]

REACTIONS (1)
  - BLOOD GLUCOSE INCREASED [None]
